FAERS Safety Report 7656680-0 (Version None)
Quarter: 2011Q3

REPORT INFORMATION
  Report Type: 
  Country: None (occurrence: None)
  Receive Date: 20110804
  Receipt Date: 20110725
  Transmission Date: 20111222
  Serious: Yes (Hospitalization)
  Sender: FDA-Public Use
  Company Number: US-MERCK-1107USA00018

PATIENT
  Age: 50 Year
  Sex: Female
  Weight: 65 kg

DRUGS (16)
  1. CALCIUM (UNSPECIFIED) [Concomitant]
     Route: 065
     Dates: start: 19970101
  2. FOSAMAX [Suspect]
     Indication: OSTEOPOROSIS
     Route: 048
     Dates: start: 19970701, end: 20110122
  3. NEXIUM [Concomitant]
     Route: 065
  4. PROVERA [Concomitant]
     Route: 065
  5. ALLEGRA [Concomitant]
     Route: 065
     Dates: start: 20090101
  6. CALCIUM (UNSPECIFIED) AND VITAMIN D (UNSPECIFIED) [Concomitant]
     Route: 065
  7. CENTRUM SILVER [Concomitant]
     Dosage: 1 DAILY
     Route: 065
     Dates: start: 19970101
  8. VIVACTIL [Concomitant]
     Route: 065
  9. VITAMIN D (UNSPECIFIED) [Concomitant]
     Route: 065
     Dates: start: 19970101
  10. FOSAMAX [Suspect]
     Route: 048
     Dates: end: 20110122
  11. TENORMIN [Concomitant]
     Route: 065
  12. SINGULAIR [Concomitant]
     Route: 048
     Dates: start: 20090101
  13. ESTRACE [Concomitant]
     Route: 065
  14. [THERAPY UNSPECIFIED] [Concomitant]
     Dosage: BLOOD PRESSURE MEDICATION
     Route: 065
  15. HYDROCHLOROTHIAZIDE [Concomitant]
     Route: 065
     Dates: start: 20101201
  16. ASPIRIN [Concomitant]
     Route: 065
     Dates: start: 20091101

REACTIONS (8)
  - FEMUR FRACTURE [None]
  - GASTRITIS [None]
  - HYPOTENSION [None]
  - VAGINAL HAEMORRHAGE [None]
  - BLOOD CHOLESTEROL INCREASED [None]
  - TOOTH IMPACTED [None]
  - GASTRIC ULCER [None]
  - FUNGAL INFECTION [None]
